FAERS Safety Report 6993573-6 (Version None)
Quarter: 2010Q3

REPORT INFORMATION
  Report Type: 
  Country: None (occurrence: None)
  Receive Date: 20100917
  Receipt Date: 20100907
  Transmission Date: 20110219
  Serious: Yes (Other)
  Sender: FDA-Public Use
  Company Number: PHFR2010GB03664

PATIENT
  Age: 3 Month
  Sex: Male

DRUGS (3)
  1. TEGRETOL [Suspect]
     Indication: GRAND MAL CONVULSION
     Dosage: 10 MG/KG, QD
     Route: 048
     Dates: start: 20100814, end: 20100816
  2. LEVETIRACETAM [Concomitant]
     Indication: CONVULSION
     Dosage: 125 MG, Q12H
     Route: 042
     Dates: start: 20100808, end: 20100814
  3. CARBAMAZEPINE [Concomitant]
     Indication: CONVULSION

REACTIONS (5)
  - ALVEOLITIS ALLERGIC [None]
  - BREATH SOUNDS ABNORMAL [None]
  - RESPIRATORY DISTRESS [None]
  - RESPIRATORY RATE INCREASED [None]
  - TACHYCARDIA [None]
